FAERS Safety Report 7360172-6 (Version None)
Quarter: 2011Q1

REPORT INFORMATION
  Report Type: 
  Country: None (occurrence: None)
  Receive Date: 20110318
  Receipt Date: 20110311
  Transmission Date: 20110831
  Serious: No
  Sender: FDA-Public Use
  Company Number: US-PFIZER INC-2011055770

PATIENT
  Sex: Female

DRUGS (1)
  1. ADVIL LIQUI-GELS [Suspect]
     Indication: PAIN
     Dosage: 200 MG (325CT BOTTLE)

REACTIONS (1)
  - DRUG INEFFECTIVE [None]
